FAERS Safety Report 4869223-1 (Version None)
Quarter: 2005Q4

REPORT INFORMATION
  Report Type: 
  Country: None (occurrence: None)
  Receive Date: 20051228
  Receipt Date: 20051228
  Transmission Date: 20060501
  Serious: Yes (Hospitalization)
  Sender: FDA-Public Use
  Company Number: None

PATIENT
  Age: 14 Year
  Sex: Male
  Weight: 52.8 kg

DRUGS (3)
  1. NAROPIN [Suspect]
     Indication: NERVE BLOCK
     Dosage: 112ML   -TO MAKE 0.375%-   CONTINUOUS-INFUSION   IV DRIP
     Route: 041
     Dates: start: 20051213, end: 20051213
  2. NAROPIN [Suspect]
  3. SODIUM CHLORIDE [Suspect]
     Dosage: 37.5ML  -TO MAKE FINAL CONC-  CONTINUOUS    IV
     Route: 042

REACTIONS (4)
  - GENERALISED ERYTHEMA [None]
  - INFUSION RELATED REACTION [None]
  - PRURITUS [None]
  - TREMOR [None]
